FAERS Safety Report 6431650-9 (Version None)
Quarter: 2009Q4

REPORT INFORMATION
  Report Type: 
  Country: None (occurrence: None)
  Receive Date: 20091103
  Receipt Date: 20091019
  Transmission Date: 20100525
  Serious: Yes (Hospitalization)
  Sender: FDA-Public Use
  Company Number: 02100-JPN-07-0780

PATIENT
  Age: 80 Year
  Sex: Female
  Weight: 51.9 kg

DRUGS (7)
  1. PLETAL [Suspect]
     Indication: CEREBRAL INFARCTION
     Dosage: 81 MG, QD, ORAL
     Route: 048
     Dates: start: 20040819
  2. PRAVASTATIN SODIUM [Suspect]
     Indication: HYPERLIPIDAEMIA
     Dosage: 10 MG, QD, ORAL
     Route: 048
     Dates: start: 20040809
  3. BLOPRESS (CANDESARTAN CILEXETIL) TABLET [Suspect]
     Indication: HYPERTENSION
     Dosage: 12 MG MG, QD; ORAL
     Route: 048
     Dates: start: 20040813
  4. MAGNESIUM OXIDE (MAGNESIUM OXIDE) POWDER FOR ORAL SOLUTION, 0.5 G [Suspect]
     Indication: CONSTIPATION
     Dosage: 0.5 G, BID; ORAL
     Route: 048
     Dates: start: 20040901
  5. AMLODIPINE BESYLATE [Suspect]
     Indication: HYPERTENSION
     Dosage: 10 MG, QD; ORAL
     Route: 048
     Dates: start: 20050203
  6. ALLOPURINOL [Suspect]
     Indication: HYPERURICAEMIA
     Dosage: 100 MG, BID; ORAL
     Route: 048
     Dates: start: 20051013
  7. LASIX [Suspect]
     Indication: HYPERURICAEMIA
     Dosage: 20 MG, QD; ORAL
     Route: 048
     Dates: start: 20060425

REACTIONS (3)
  - CATARACT [None]
  - CONSTIPATION [None]
  - VISION BLURRED [None]
